FAERS Safety Report 5098835-8 (Version None)
Quarter: 2006Q3

REPORT INFORMATION
  Report Type: 
  Country: None (occurrence: None)
  Receive Date: 20060907
  Receipt Date: 20060118
  Transmission Date: 20061208
  Serious: Yes (Other)
  Sender: FDA-Public Use
  Company Number: SEWYE328424JAN06

PATIENT
  Sex: Female

DRUGS (1)
  1. ENBREL [Suspect]
     Indication: RHEUMATOID ARTHRITIS
     Dosage: THE DOSE REGIMEN WAS NOT SPECIFIED
     Dates: start: 20050909

REACTIONS (2)
  - MYALGIA [None]
  - TENDON DISORDER [None]
